FAERS Safety Report 20098535 (Version 1)
Quarter: 2021Q4

REPORT INFORMATION
  Report Type: Spontaneous
  Country: US (occurrence: US)
  Receive Date: 20211122
  Receipt Date: 20211122
  Transmission Date: 20220303
  Serious: No
  Sender: FDA-Public Use
  Company Number: US-BRACCO-2021US00076

PATIENT

DRUGS (3)
  1. LUMASON [Suspect]
     Active Substance: SULFUR HEXAFLUORIDE
     Dosage: UNK, SINGLE
     Dates: start: 20210111, end: 20210111
  2. LUMASON [Suspect]
     Active Substance: SULFUR HEXAFLUORIDE
     Dosage: UNK, SINGLE
     Dates: start: 20210111, end: 20210111
  3. LUMASON [Suspect]
     Active Substance: SULFUR HEXAFLUORIDE
     Dosage: UNK, SINGLE
     Dates: start: 20210111, end: 20210111

REACTIONS (1)
  - Drug ineffective [Unknown]

NARRATIVE: CASE EVENT DATE: 20210111
